FAERS Safety Report 21860616 (Version 1)
Quarter: 2023Q1

REPORT INFORMATION
  Report Type: Spontaneous
  Country: US (occurrence: None)
  Receive Date: 20230113
  Receipt Date: 20230113
  Transmission Date: 20230418
  Serious: Yes (Hospitalization)
  Sender: FDA-Public Use
  Company Number: None

PATIENT
  Sex: Male
  Weight: 74 kg

DRUGS (25)
  1. EPCLUSA [Suspect]
     Active Substance: SOFOSBUVIR\VELPATASVIR
     Indication: Hepatitis C
     Dosage: 400-100 MG TABLET X1 DAILY BY MOUTH
     Route: 048
     Dates: start: 20200530, end: 20200817
  2. AMLODIPINE [Concomitant]
     Active Substance: AMLODIPINE BESYLATE
  3. ASPIRIN [Concomitant]
     Active Substance: ASPIRIN
  4. CALCIUM CARBONATE [Concomitant]
     Active Substance: CALCIUM CARBONATE
  5. CEPHALEXIN [Concomitant]
     Active Substance: CEPHALEXIN
  6. CITALOPRAM [Concomitant]
     Active Substance: CITALOPRAM HYDROBROMIDE
  7. CLONIDINE [Concomitant]
  8. DOCUSATE SODIUM [Concomitant]
     Active Substance: DOCUSATE SODIUM
  9. FERROUS SULFATE [Concomitant]
     Active Substance: FERROUS SULFATE
  10. GABAPENTIN [Concomitant]
     Active Substance: GABAPENTIN
  11. INSULIN ASPART [Concomitant]
     Active Substance: INSULIN ASPART
  12. insulin determir [Concomitant]
  13. MAGNESIUM OXIDE [Concomitant]
     Active Substance: MAGNESIUM OXIDE
  14. mycophanolate [Concomitant]
  15. NYSTATIN [Concomitant]
     Active Substance: NYSTATIN
  16. OXYCODONE [Concomitant]
     Active Substance: OXYCODONE
  17. PANTOPRAZOLE [Concomitant]
     Active Substance: PANTOPRAZOLE
  18. PRAVASTATIN [Concomitant]
     Active Substance: PRAVASTATIN
  19. PREDNISONE [Concomitant]
     Active Substance: PREDNISONE
  20. BACTRIM [Concomitant]
     Active Substance: SULFAMETHOXAZOLE\TRIMETHOPRIM
  21. TACROLIMUS [Concomitant]
     Active Substance: TACROLIMUS
  22. TORSEMIDE [Concomitant]
     Active Substance: TORSEMIDE
  23. VALGANCICLOVIR [Concomitant]
     Active Substance: VALGANCICLOVIR
  24. ALPRAZOLAM [Concomitant]
     Active Substance: ALPRAZOLAM
  25. PROGRAF [Suspect]
     Active Substance: TACROLIMUS

REACTIONS (2)
  - Transplant rejection [None]
  - Drug level below therapeutic [None]

NARRATIVE: CASE EVENT DATE: 20200611
